FAERS Safety Report 9135182 (Version 1)
Quarter: 2013Q1

REPORT INFORMATION
  Report Type: Report from Study
  Country: DE (occurrence: DE)
  Receive Date: 20130304
  Receipt Date: 20130304
  Transmission Date: 20140127
  Serious: Yes (Hospitalization)
  Sender: FDA-Public Use
  Company Number: DE-009507513-1104DEU00074

PATIENT
  Age: 75 Year
  Sex: Male
  Weight: 61 kg

DRUGS (13)
  1. VORINOSTAT [Suspect]
     Indication: SARCOMA METASTATIC
     Dosage: 300 MG, QD
     Route: 048
     Dates: start: 20110329, end: 20110415
  2. VORINOSTAT [Suspect]
     Dosage: 300 MG, QD
     Route: 048
     Dates: start: 20110429, end: 20110508
  3. VORINOSTAT [Suspect]
     Dosage: 400 MG, QD
     Route: 048
     Dates: end: 20110328
  4. PREDNISOLONE [Concomitant]
     Dosage: 5 MG, QD
  5. METOCLOPRAMIDE [Concomitant]
     Dosage: 30 UNK, TID
  6. TRAMADOL HYDROCHLORIDE [Concomitant]
     Dosage: 10 MG, QD
  7. PANTOZOL [Concomitant]
     Dosage: 40 MG, BID
  8. CLEXANE (ENOXAPARIN SODIUM) [Concomitant]
     Dosage: 80 MG, QD
  9. FERRO SANOL [Concomitant]
     Dosage: 1 UNK, QD
  10. AMLODIPINE [Concomitant]
     Dosage: 2.5 MG, QD
  11. MALTODEXTRIN [Concomitant]
     Dosage: 12.5 MG, TID
  12. HEPARIN LOW MOLECULAR WEIGHT [Concomitant]
  13. PENTASA [Concomitant]
     Dosage: 500 MG, BID

REACTIONS (4)
  - Haemorrhage [Recovered/Resolved]
  - Pancytopenia [Not Recovered/Not Resolved]
  - Thrombocytopenia [Not Recovered/Not Resolved]
  - Subileus [Not Recovered/Not Resolved]
